FAERS Safety Report 11248594 (Version 3)
Quarter: 2018Q2

REPORT INFORMATION
  Report Type: Spontaneous
  Country: US (occurrence: US)
  Receive Date: 20150708
  Receipt Date: 20180604
  Transmission Date: 20180711
  Serious: Yes (Hospitalization, Other)
  Sender: FDA-Public Use
  Company Number: US-DSJP-DSU-2015-120652

PATIENT

DRUGS (5)
  1. HYDROCODONE [Concomitant]
     Active Substance: HYDROCODONE
     Indication: PRODUCT USED FOR UNKNOWN INDICATION
     Dosage: 5/235 MG PER DAY
     Dates: start: 2011, end: 2012
  2. BENICAR [Suspect]
     Active Substance: OLMESARTAN MEDOXOMIL
     Dosage: 40 MG, QD
     Route: 048
     Dates: start: 20120101, end: 2014
  3. NORPACE CR [Concomitant]
     Active Substance: DISOPYRAMIDE PHOSPHATE
     Indication: PRODUCT USED FOR UNKNOWN INDICATION
     Dosage: 150 MG, QD
     Dates: start: 2012
  4. BENICAR [Suspect]
     Active Substance: OLMESARTAN MEDOXOMIL
     Indication: HYPERTENSION
     Dosage: 20 MG, QD
     Route: 048
     Dates: start: 20120101, end: 2014
  5. DILTIAZEM. [Concomitant]
     Active Substance: DILTIAZEM
     Indication: PRODUCT USED FOR UNKNOWN INDICATION
     Dosage: 180 MG, QD
     Dates: start: 2012

REACTIONS (10)
  - Intestinal obstruction [Unknown]
  - Colon adenoma [Recovered/Resolved]
  - Thrombosis [Unknown]
  - Sprue-like enteropathy [Not Recovered/Not Resolved]
  - Anaemia [Unknown]
  - Rectal haemorrhage [Unknown]
  - Anxiety [Unknown]
  - Constipation [Unknown]
  - Diverticulitis [Unknown]
  - Renal failure [Unknown]

NARRATIVE: CASE EVENT DATE: 20130101
